FAERS Safety Report 14071890 (Version 1)
Quarter: 2017Q4

REPORT INFORMATION
  Report Type: Spontaneous
  Country: US (occurrence: US)
  Receive Date: 20171010
  Receipt Date: 20171010
  Transmission Date: 20180321
  Serious: No
  Sender: FDA-Public Use
  Company Number: US-SA-2017SA141458

PATIENT
  Age: 62 Year
  Sex: Male

DRUGS (1)
  1. SAR231893 [Suspect]
     Active Substance: DUPILUMAB
     Indication: SKIN CANCER
     Dosage: STRENGTH: 300MG/2ML, PFS
     Route: 058
     Dates: start: 20150202

REACTIONS (2)
  - Eye pruritus [Unknown]
  - Product use in unapproved indication [Unknown]

NARRATIVE: CASE EVENT DATE: 20150615
